FAERS Safety Report 4876252-0 (Version None)
Quarter: 2006Q1

REPORT INFORMATION
  Report Type: 
  Country: None (occurrence: None)
  Receive Date: 20060110
  Receipt Date: 20051209
  Transmission Date: 20060701
  Serious: Yes (Other)
  Sender: FDA-Public Use
  Company Number: CA-AVENTIS-200521006GDDC

PATIENT
  Age: 77 Year
  Sex: Male

DRUGS (7)
  1. LANTUS [Suspect]
     Indication: DIABETES MELLITUS
     Route: 058
     Dates: start: 20050329, end: 20051130
  2. OPTIPEN (INSULIN PUMP) [Suspect]
     Indication: DIABETES MELLITUS
  3. CODE UNBROKEN [Concomitant]
     Dosage: DOSE: UNKNOWN DOSAGE
     Route: 048
     Dates: start: 20050329
  4. ASPIRIN [Concomitant]
     Indication: MYOCARDIAL ISCHAEMIA
  5. LIPEX [Concomitant]
     Indication: BLOOD CHOLESTEROL INCREASED
  6. ATENOLOL [Concomitant]
     Indication: MYOCARDIAL ISCHAEMIA
  7. TRITACE [Concomitant]
     Indication: BLOOD PRESSURE INCREASED
     Dates: start: 20050301

REACTIONS (7)
  - CAROTID ARTERY STENOSIS [None]
  - DISEASE PROGRESSION [None]
  - DIZZINESS [None]
  - DYSKINESIA [None]
  - HYPOGLYCAEMIA [None]
  - MICTURITION URGENCY [None]
  - VISUAL FIELD DEFECT [None]
